FAERS Safety Report 8757405 (Version 1)
Quarter: 2012Q4

REPORT INFORMATION
  Report Type: 
  Country: US (occurrence: US)
  Receive Date: 20120828
  Receipt Date: 20120828
  Transmission Date: 20130627
  Serious: Yes (Other)
  Sender: FDA-Public Use
  Company Number: US-TEVA-355648USA

PATIENT
  Sex: Female

DRUGS (1)
  1. CLARAVIS [Suspect]
     Dosage: 80 Milligram Daily;
     Route: 048
     Dates: end: 20120815

REACTIONS (4)
  - Drug withdrawal syndrome [Unknown]
  - Balance disorder [Unknown]
  - Nausea [Unknown]
  - Dizziness [Unknown]
